FAERS Safety Report 5343642-1 (Version None)
Quarter: 2007Q2

REPORT INFORMATION
  Report Type: 
  Country: None (occurrence: None)
  Receive Date: 20070531
  Receipt Date: 20070515
  Transmission Date: 20071010
  Serious: Yes (Hospitalization)
  Sender: FDA-Public Use
  Company Number: 2007BI010195

PATIENT
  Age: 68 Year
  Sex: Female

DRUGS (1)
  1. NATALIZUMAB [Suspect]
     Indication: MULTIPLE SCLEROSIS
     Dosage: IV
     Route: 042
     Dates: start: 20070101, end: 20070101

REACTIONS (14)
  - APLASTIC ANAEMIA [None]
  - BONE MARROW FAILURE [None]
  - CEREBELLAR SYNDROME [None]
  - CHEST X-RAY ABNORMAL [None]
  - CONFUSIONAL STATE [None]
  - COOMBS NEGATIVE HAEMOLYTIC ANAEMIA [None]
  - EXTRAMEDULLARY HAEMOPOIESIS [None]
  - INTERSTITIAL LUNG DISEASE [None]
  - MULTIPLE SCLEROSIS RELAPSE [None]
  - NYSTAGMUS [None]
  - PLATELET COUNT DECREASED [None]
  - RESPIRATORY FAILURE [None]
  - URINARY TRACT INFECTION [None]
  - WHITE BLOOD CELL COUNT DECREASED [None]
